FAERS Safety Report 15436810 (Version 2)
Quarter: 2018Q4

REPORT INFORMATION
  Report Type: Spontaneous
  Country: US (occurrence: US)
  Receive Date: 20180927
  Receipt Date: 20181018
  Transmission Date: 20190204
  Serious: Yes (Disabling, Other)
  Sender: FDA-Public Use
  Company Number: US-REGENERON PHARMACEUTICALS, INC.-2018-38217

PATIENT

DRUGS (2)
  1. EYLEA [Suspect]
     Active Substance: AFLIBERCEPT
     Indication: NEOVASCULAR AGE-RELATED MACULAR DEGENERATION
     Dosage: UNK, OS
     Route: 031
     Dates: start: 20130901
  2. EYLEA [Suspect]
     Active Substance: AFLIBERCEPT
     Dosage: OS, LAST DOSE PRIOR EVENT
     Route: 031
     Dates: start: 20180912, end: 20180912

REACTIONS (4)
  - Vitrectomy [Unknown]
  - Blindness transient [Recovered/Resolved]
  - Iritis [Recovered/Resolved]
  - Vitritis [Recovered/Resolved]

NARRATIVE: CASE EVENT DATE: 20180914
